FAERS Safety Report 9527566 (Version 1)
Quarter: 2013Q1

REPORT INFORMATION
  Report Type: Spontaneous
  Country: US (occurrence: None)
  Receive Date: 20130312
  Receipt Date: 20130312
  Transmission Date: 20140127
  Serious: Yes (Other)
  Sender: FDA-Public Use
  Company Number: TH-2013-00038

PATIENT
  Age: 58 Year
  Sex: Male
  Weight: 79 kg

DRUGS (4)
  1. EGRIFTA [Suspect]
     Indication: PRODUCT USED FOR UNKNOWN INDICATION
     Dosage: 1 IN 1 D
     Dates: end: 20121001
  2. PLAVIX [Concomitant]
  3. ACYCLOVIR [Concomitant]
  4. ISENTRESS [Concomitant]

REACTIONS (2)
  - Insulin-like growth factor increased [None]
  - Dyspnoea [None]
